FAERS Safety Report 7953440-8 (Version None)
Quarter: 2011Q4

REPORT INFORMATION
  Report Type: 
  Country: None (occurrence: None)
  Receive Date: 20111202
  Receipt Date: 20111128
  Transmission Date: 20120403
  Serious: No
  Sender: FDA-Public Use
  Company Number: US-PFIZER INC-2011289682

PATIENT

DRUGS (1)
  1. AROMASIN [Suspect]
     Dosage: UNK

REACTIONS (1)
  - ARTHRALGIA [None]
